FAERS Safety Report 11310561 (Version 2)
Quarter: 2015Q4

REPORT INFORMATION
  Report Type: Spontaneous
  Country: US (occurrence: US)
  Receive Date: 20150724
  Receipt Date: 20151120
  Transmission Date: 20160304
  Serious: Yes (Death)
  Sender: FDA-Public Use
  Company Number: US-GALENA BIOPHARMA-1040719

PATIENT
  Age: 40 Year
  Sex: Female

DRUGS (7)
  1. COMPAZINE [Concomitant]
     Active Substance: PROCHLORPERAZINE MALEATE
  2. WELLBUTRIN [Concomitant]
     Active Substance: BUPROPION HYDROCHLORIDE
  3. LORTAB [Concomitant]
     Active Substance: ACETAMINOPHEN\HYDROCODONE BITARTRATE
  4. XANAX [Concomitant]
     Active Substance: ALPRAZOLAM
  5. ABSTRAL [Suspect]
     Active Substance: FENTANYL CITRATE
     Indication: PAIN
     Route: 060
  6. FENTANYL TRANSDERMAL SYSTEM [Concomitant]
     Active Substance: FENTANYL
  7. OMEPRAZOLE. [Concomitant]
     Active Substance: OMEPRAZOLE

REACTIONS (2)
  - Death [Fatal]
  - Malignant neoplasm progression [None]

NARRATIVE: CASE EVENT DATE: 20120706
